FAERS Safety Report 13176484 (Version 1)
Quarter: 2017Q1

REPORT INFORMATION
  Report Type: Report from Study
  Country: IL (occurrence: IL)
  Receive Date: 20170201
  Receipt Date: 20170201
  Transmission Date: 20170428
  Serious: Yes (Death)
  Sender: FDA-Public Use
  Company Number: PHHY2017IL015649

PATIENT
  Sex: Male

DRUGS (1)
  1. SANDOSTATIN LAR DEPOT [Suspect]
     Active Substance: OCTREOTIDE ACETATE
     Indication: PANCREATIC NEUROENDOCRINE TUMOUR
     Dosage: 30 MG, QMO (Q4W)
     Route: 030
     Dates: start: 20161208, end: 20170105

REACTIONS (1)
  - Death [Fatal]
